FAERS Safety Report 6722014-9 (Version None)
Quarter: 2010Q2

REPORT INFORMATION
  Report Type: 
  Country: None (occurrence: None)
  Receive Date: 20100512
  Receipt Date: 20100504
  Transmission Date: 20101027
  Serious: Yes (Death)
  Sender: FDA-Public Use
  Company Number: US-GILEAD-2010-0028916

PATIENT
  Sex: Female

DRUGS (15)
  1. LETAIRIS [Suspect]
     Indication: PULMONARY ARTERIAL HYPERTENSION
     Route: 048
     Dates: start: 20091116
  2. REVATIO [Concomitant]
  3. HYDROCHLOROTHIAZIDE [Concomitant]
  4. VITAMIN D [Concomitant]
  5. QVAR 40 [Concomitant]
  6. SPIRIVA [Concomitant]
  7. TRENTAL [Concomitant]
  8. CORGARD [Concomitant]
  9. LEVOTHYROXINE SODIUM [Concomitant]
  10. MULTI FOR HER [Concomitant]
  11. ASPIRIN [Concomitant]
  12. LIBRIUM [Concomitant]
  13. EVISTA [Concomitant]
  14. PRILOSEC [Concomitant]
  15. FOLIC ACID [Concomitant]

REACTIONS (1)
  - RIGHT VENTRICULAR FAILURE [None]
